FAERS Safety Report 15419080 (Version 1)
Quarter: 2018Q3

REPORT INFORMATION
  Report Type: Spontaneous
  Country: US (occurrence: US)
  Receive Date: 20180924
  Receipt Date: 20180924
  Transmission Date: 20181010
  Serious: No
  Sender: FDA-Public Use
  Company Number: US-ASTRAZENECA-2018SF18681

PATIENT
  Sex: Female

DRUGS (1)
  1. LYNPARZA [Suspect]
     Active Substance: OLAPARIB
     Indication: ILL-DEFINED DISORDER
     Route: 048

REACTIONS (3)
  - Fatigue [Unknown]
  - Off label use [Unknown]
  - Product use issue [Unknown]
